FAERS Safety Report 11655219 (Version 1)
Quarter: 2015Q4

REPORT INFORMATION
  Report Type: Spontaneous
  Country: US (occurrence: None)
  Receive Date: 20151022
  Receipt Date: 20151022
  Transmission Date: 20160304
  Serious: No
  Sender: FDA-Public Use
  Company Number: None

PATIENT
  Age: 60 Year
  Sex: Female

DRUGS (11)
  1. DRANAMINE [Concomitant]
  2. LORAZEPAM. [Concomitant]
     Active Substance: LORAZEPAM
  3. ALPRZOLAM [Concomitant]
  4. FOLIC ACID. [Concomitant]
     Active Substance: FOLIC ACID
  5. CYCLOBENZAPR [Concomitant]
  6. TORSEMIDE. [Concomitant]
     Active Substance: TORSEMIDE
  7. OMEPRAZOLE. [Concomitant]
     Active Substance: OMEPRAZOLE
  8. AMBIEN [Concomitant]
     Active Substance: ZOLPIDEM TARTRATE
  9. OXYCODONE [Concomitant]
     Active Substance: OXYCODONE
  10. SUTENT [Suspect]
     Active Substance: SUNITINIB MALATE
     Indication: PANCREATIC CARCINOMA
     Route: 048
     Dates: start: 20150603
  11. THIAMINE. [Concomitant]
     Active Substance: THIAMINE

REACTIONS (1)
  - Drug dose omission [None]

NARRATIVE: CASE EVENT DATE: 201509
